FAERS Safety Report 7108238-X (Version None)
Quarter: 2010Q4

REPORT INFORMATION
  Report Type: 
  Country: None (occurrence: None)
  Receive Date: 20101117
  Receipt Date: 20101111
  Transmission Date: 20110411
  Serious: Yes (Life-Threatening, Hospitalization)
  Sender: FDA-Public Use
  Company Number: PH-ELI_LILLY_AND_COMPANY-PH201011003608

PATIENT
  Sex: Male
  Weight: 61 kg

DRUGS (5)
  1. PRASUGREL HYDROCHLORIDE [Suspect]
     Indication: ACUTE CORONARY SYNDROME
     Route: 048
     Dates: start: 20100927, end: 20101110
  2. ASPIRIN [Concomitant]
     Indication: ACUTE CORONARY SYNDROME
     Dosage: 80 MG, UNK
     Dates: start: 20101002
  3. ASPIRIN [Concomitant]
     Dosage: 80 MG, UNK
     Route: 048
     Dates: start: 20100925, end: 20100929
  4. DIGOXIN [Concomitant]
     Indication: CARDIAC FAILURE CONGESTIVE
     Dosage: 0.25 MG, UNK
     Dates: start: 20100929
  5. INSULIN [Concomitant]
     Indication: CARDIAC FAILURE CONGESTIVE
     Dates: start: 20080807

REACTIONS (3)
  - CEREBROVASCULAR ACCIDENT [None]
  - DIABETES MELLITUS INADEQUATE CONTROL [None]
  - GASTRITIS [None]
